FAERS Safety Report 9638930 (Version 1)
Quarter: 2013Q4

REPORT INFORMATION
  Report Type: Spontaneous
  Country: US (occurrence: US)
  Receive Date: 20131022
  Receipt Date: 20131022
  Transmission Date: 20140711
  Serious: No
  Sender: FDA-Public Use
  Company Number: US-BRISTOL-MYERS SQUIBB COMPANY-19074525

PATIENT
  Age: 71 Year
  Sex: Male
  Weight: 92.97 kg

DRUGS (8)
  1. PREDNISONE [Concomitant]
  2. DIGOXIN [Concomitant]
  3. SINGULAIR [Concomitant]
  4. OMEGA 3 FATTY ACID [Concomitant]
  5. ELIQUIS [Suspect]
     Indication: ATRIAL FIBRILLATION
     Dates: start: 2013
  6. SPIRIVA [Concomitant]
  7. SYMBICORT [Concomitant]
  8. ZOCOR [Concomitant]

REACTIONS (1)
  - Breath odour [Unknown]
